FAERS Safety Report 24801594 (Version 1)
Quarter: 2025Q1

REPORT INFORMATION
  Report Type: Spontaneous
  Country: US (occurrence: US)
  Receive Date: 20250102
  Receipt Date: 20250102
  Transmission Date: 20250409
  Serious: No
  Sender: PFIZER
  Company Number: US-PFIZER INC-202400332626

PATIENT
  Age: 81 Year
  Sex: Female

DRUGS (4)
  1. EXEMESTANE [Suspect]
     Active Substance: EXEMESTANE
     Indication: Breast cancer female
     Dates: start: 20220128
  2. EXEMESTANE [Suspect]
     Active Substance: EXEMESTANE
     Indication: Bone cancer
  3. PALBOCICLIB [Suspect]
     Active Substance: PALBOCICLIB
     Indication: Breast cancer female
     Route: 048
     Dates: start: 2022
  4. PALBOCICLIB [Suspect]
     Active Substance: PALBOCICLIB
     Indication: Bone cancer

REACTIONS (1)
  - Neoplasm progression [Unknown]

NARRATIVE: CASE EVENT DATE: 20220428
